FAERS Safety Report 23596956 (Version 1)
Quarter: 2024Q1

REPORT INFORMATION
  Report Type: Spontaneous
  Country: GB (occurrence: GB)
  Receive Date: 20240305
  Receipt Date: 20240305
  Transmission Date: 20240410
  Serious: Yes (Other)
  Sender: FDA-Public Use
  Company Number: GB-B.Braun Medical Inc.-2154050

PATIENT
  Age: 50 Year
  Sex: Male
  Weight: 120 kg

DRUGS (6)
  1. ACETAMINOPHEN [Suspect]
     Active Substance: ACETAMINOPHEN
  2. ASTRAZENECA COVID-19 VACCINE [Suspect]
     Active Substance: AZD-1222
  3. VITAMIN D [Suspect]
     Active Substance: VITAMIN D NOS
  4. THYROXINE [Suspect]
     Active Substance: LEVOTHYROXINE
  5. CITALOPRAM [Suspect]
     Active Substance: CITALOPRAM HYDROBROMIDE
  6. CANDESARTAN [Suspect]
     Active Substance: CANDESARTAN

REACTIONS (1)
  - Thrombosis with thrombocytopenia syndrome [Unknown]
